FAERS Safety Report 25659767 (Version 1)
Quarter: 2025Q3

REPORT INFORMATION
  Report Type: Spontaneous
  Country: CA (occurrence: CA)
  Receive Date: 20250808
  Receipt Date: 20250808
  Transmission Date: 20251021
  Serious: Yes (Life-Threatening, Other)
  Sender: ANI
  Company Number: CA-ANIPHARMA-2025-CA-002465

PATIENT
  Age: 73 Year
  Sex: Female
  Weight: 55 kg

DRUGS (5)
  1. ARIMIDEX [Suspect]
     Active Substance: ANASTROZOLE
     Indication: Product used for unknown indication
  2. CAPECITABINE [Suspect]
     Active Substance: CAPECITABINE
     Route: 048
  3. FASLODEX [Suspect]
     Active Substance: FULVESTRANT
  4. DEVICE [Suspect]
     Active Substance: DEVICE
  5. RIBOCICLIB [Suspect]
     Active Substance: RIBOCICLIB

REACTIONS (6)
  - Breast cancer metastatic [Unknown]
  - Burn oesophageal [Unknown]
  - Drug ineffective [Unknown]
  - Dysphagia [Unknown]
  - Malignant neoplasm progression [Unknown]
  - Neoplasm malignant [Unknown]
